FAERS Safety Report 25162439 (Version 1)
Quarter: 2025Q2

REPORT INFORMATION
  Report Type: Spontaneous
  Country: CH (occurrence: CH)
  Receive Date: 20250404
  Receipt Date: 20250404
  Transmission Date: 20250717
  Serious: Yes (Hospitalization, Other)
  Sender: TEVA
  Company Number: None

PATIENT
  Age: 41 Year
  Sex: Male
  Weight: 65.6 kg

DRUGS (11)
  1. FLUOROURACIL [Suspect]
     Active Substance: FLUOROURACIL
     Indication: Colon cancer metastatic
     Route: 040
     Dates: start: 20241015, end: 20250226
  2. UREA [Concomitant]
     Active Substance: UREA
     Indication: Product used for unknown indication
     Route: 061
  3. Anesderm [Concomitant]
     Indication: Product used for unknown indication
     Route: 061
  4. DAFALGAN [Concomitant]
     Active Substance: ACETAMINOPHEN
     Indication: Product used for unknown indication
     Route: 048
  5. LEUCOVORIN [Suspect]
     Active Substance: LEUCOVORIN\LEUCOVORIN CALCIUM
     Indication: Colon cancer metastatic
     Route: 040
     Dates: start: 20241015, end: 20250226
  6. IMODIUM [Concomitant]
     Active Substance: LOPERAMIDE HYDROCHLORIDE
     Indication: Product used for unknown indication
     Route: 048
  7. Monovo [Concomitant]
     Indication: Product used for unknown indication
     Route: 061
  8. DOXYCYCLINE [Suspect]
     Active Substance: DOXYCYCLINE
     Indication: Colon cancer metastatic
     Dosage: 100 MG 2XDAY (LONG-TERM MEDICATION UNDER CHEMOTHERAPY)
     Route: 048
     Dates: start: 20241015
  9. XARELTO [Concomitant]
     Active Substance: RIVAROXABAN
     Indication: Product used for unknown indication
     Dosage: 20 MG 1XDAY; IF REQUIRED, PAUSED
     Route: 048
  10. ELOXATIN [Suspect]
     Active Substance: OXALIPLATIN
     Indication: Colon cancer metastatic
     Route: 040
     Dates: start: 20241015, end: 20250226
  11. VECTIBIX [Suspect]
     Active Substance: PANITUMUMAB
     Indication: Colon cancer metastatic
     Route: 040
     Dates: start: 20241015, end: 20250226

REACTIONS (2)
  - Haemophagocytic lymphohistiocytosis [Recovering/Resolving]
  - Haemophagocytic lymphohistiocytosis [Recovering/Resolving]

NARRATIVE: CASE EVENT DATE: 20250227
